FAERS Safety Report 20001484 (Version 2)
Quarter: 2021Q4

REPORT INFORMATION
  Report Type: Spontaneous
  Country: FR (occurrence: FR)
  Receive Date: 20211027
  Receipt Date: 20211103
  Transmission Date: 20220303
  Serious: Yes (Hospitalization, Other)
  Sender: FDA-Public Use
  Company Number: None

PATIENT

DRUGS (5)
  1. SUBUTEX [Suspect]
     Active Substance: BUPRENORPHINE HYDROCHLORIDE
     Indication: Product used for unknown indication
     Dosage: UNK
     Route: 042
     Dates: start: 1998, end: 2004
  2. KETAMINE [Suspect]
     Active Substance: KETAMINE
     Indication: Product used for unknown indication
     Dosage: UNK
     Route: 065
  3. OXAZEPAM [Suspect]
     Active Substance: OXAZEPAM
     Indication: Product used for unknown indication
     Dosage: 250 MILLIGRAM, QD
     Route: 065
     Dates: end: 2014
  4. ALCOHOL [Suspect]
     Active Substance: ALCOHOL
     Indication: Product used for unknown indication
     Dosage: 60 OF / DAY
     Route: 048
     Dates: start: 1991
  5. TOBACCO LEAF [Suspect]
     Active Substance: TOBACCO LEAF
     Indication: Product used for unknown indication
     Dosage: 30 ROLLED CIGS / DAY
     Route: 055

REACTIONS (16)
  - Cerebral haemorrhage [Recovered/Resolved]
  - Stress cardiomyopathy [Not Recovered/Not Resolved]
  - Generalised tonic-clonic seizure [Recovered/Resolved]
  - Joint dislocation [Recovering/Resolving]
  - Clavicle fracture [Recovering/Resolving]
  - Craniocerebral injury [Recovered/Resolved]
  - Electrocardiogram T wave abnormal [Not Recovered/Not Resolved]
  - Hypokalaemia [Recovered/Resolved]
  - Eschar [Recovered/Resolved]
  - Ejection fraction decreased [Not Recovered/Not Resolved]
  - Electrocardiogram QT prolonged [Not Recovered/Not Resolved]
  - Hepatic enzyme increased [Recovering/Resolving]
  - Tachycardia [Recovering/Resolving]
  - Drug abuse [Recovered/Resolved with Sequelae]
  - Drug withdrawal syndrome [Recovered/Resolved]
  - Intentional product use issue [Recovered/Resolved]

NARRATIVE: CASE EVENT DATE: 19980101
